FAERS Safety Report 7475407-9 (Version None)
Quarter: 2011Q2

REPORT INFORMATION
  Report Type: 
  Country: None (occurrence: None)
  Receive Date: 20110512
  Receipt Date: 20110427
  Transmission Date: 20111010
  Serious: Yes (Other)
  Sender: FDA-Public Use
  Company Number: MX-SANOFI-AVENTIS-2011SA026585

PATIENT
  Age: 63 Year
  Sex: Female
  Weight: 68 kg

DRUGS (2)
  1. INSULIN [Suspect]
     Indication: TYPE 2 DIABETES MELLITUS
     Route: 058
     Dates: end: 20100901
  2. LANTUS [Suspect]
     Indication: TYPE 2 DIABETES MELLITUS
     Dosage: DASAGE:EVERY 24 HOURS (AT NIGHT)
     Route: 058
     Dates: start: 20070101, end: 20100901

REACTIONS (5)
  - DEPRESSION [None]
  - PNEUMONIA [None]
  - HYPOGLYCAEMIA [None]
  - COUGH [None]
  - HYPERGLYCAEMIA [None]
